FAERS Safety Report 15600962 (Version 3)
Quarter: 2019Q2

REPORT INFORMATION
  Report Type: Spontaneous
  Country: US (occurrence: US)
  Receive Date: 20181109
  Receipt Date: 20190625
  Transmission Date: 20190711
  Serious: No
  Sender: FDA-Public Use
  Company Number: US-PFIZER INC-2018390324

PATIENT
  Age: 77 Year
  Sex: Male
  Weight: 74.84 kg

DRUGS (22)
  1. ASPIR LOW [Concomitant]
     Active Substance: ASPIRIN
     Dosage: 1 DF, 1X/DAY
  2. DOXAZOSIN MESYLATE. [Concomitant]
     Active Substance: DOXAZOSIN MESYLATE
     Dosage: 2 MG, UNK
     Route: 048
  3. FLUOCINONIDE. [Concomitant]
     Active Substance: FLUOCINONIDE
     Dosage: UNK UNK, AS NEEDED(APPLY YTP AFFECTED AREA BY TOPICAL ROUTE 2 TIMES PER DAY AS NEEDED)
     Route: 061
  4. LYRICA [Suspect]
     Active Substance: PREGABALIN
     Indication: NEUROPATHY PERIPHERAL
     Dosage: 0.75 MG, UNK
     Dates: start: 201809
  5. LISINOPRIL. [Concomitant]
     Active Substance: LISINOPRIL
     Indication: BLOOD PRESSURE ABNORMAL
     Dosage: 40 MG, DAILY
     Route: 048
     Dates: start: 1998
  6. LISINOPRIL. [Concomitant]
     Active Substance: LISINOPRIL
     Dosage: UNK
     Dates: start: 200701
  7. AMLODIPINE [Concomitant]
     Active Substance: AMLODIPINE BESYLATE
     Dosage: 2.5 MG, DAILY
     Route: 048
  8. LYRICA [Suspect]
     Active Substance: PREGABALIN
     Indication: RENAL DISORDER
     Dosage: 150 MG, DAILY
  9. PARICALCITOL. [Concomitant]
     Active Substance: PARICALCITOL
     Dosage: 1 UG, AS NEEDED(TAKE 1 MICROGRAM(S) EVERY DAY BY ORAL ROUTE AS NEEDED FOR 90 DAYS)
     Route: 048
  10. TEMAZEPAM. [Concomitant]
     Active Substance: TEMAZEPAM
     Dosage: 30 MG, DAILY
     Route: 048
  11. FUROSEMIDE. [Concomitant]
     Active Substance: FUROSEMIDE
     Dosage: 20 MG, DAILY
     Route: 048
  12. PRAVASTATIN. [Concomitant]
     Active Substance: PRAVASTATIN
     Dosage: 80 MG, DAILY(TAKE 1 TABLET(S) EVERY DAY BY ORAL ROUTE FOR 90 DAYS)
     Route: 048
  13. ZOLPIDEM TARTRATE. [Concomitant]
     Active Substance: ZOLPIDEM TARTRATE
     Dosage: 12.5 MG, DAILY
  14. GABAPENTIN. [Concomitant]
     Active Substance: GABAPENTIN
     Dosage: 300 MG, 3X/DAY(TAKE 1 CAPSULE(S) 3 TIMES A DAY BY ORAL ROUTE WITH MEALS FOR 30 DAYS.)
     Route: 048
  15. ALLOPURINOL. [Concomitant]
     Active Substance: ALLOPURINOL
     Dosage: 100 MG, DAILY(TAKE 1 TABLET(S) EVERY DAY BY ORAL ROUTE FOR 90 DAYS)
     Route: 048
  16. DULOXETINE. [Concomitant]
     Active Substance: DULOXETINE
     Dosage: 20 MG, AS NEEDED (TAKE 1 CAPSULE(S) AS NEEDED BY ORAL ROUTE IN THE EVENING FOR 30 DAYS)
     Route: 048
  17. ROPINIROLE. [Concomitant]
     Active Substance: ROPINIROLE
     Dosage: 0.25 MG, DAILY(TAKE 1 TABLET(S) EVERY DAY BY ORAL ROUTE IN THE EVENING FOR 30 DAYS)
     Route: 048
  18. TRIAMCINOLONE ACETONIDE (GLUCOCORTICOID) [Concomitant]
     Dosage: UNK UNK, 2X/DAY
     Route: 061
  19. ZOLPIDEM TARTRATE. [Concomitant]
     Active Substance: ZOLPIDEM TARTRATE
     Dosage: 10 MG, DAILY (EVERY DAY BY ORAL ROUTE FOR 30 DAYS)
     Route: 048
  20. MAGNESIUM OXIDE. [Concomitant]
     Active Substance: MAGNESIUM OXIDE
     Dosage: UNK
  21. TAMSULOSIN HCL [Concomitant]
     Active Substance: TAMSULOSIN HYDROCHLORIDE
     Dosage: UNK
  22. VITAMIN D3 [Concomitant]
     Active Substance: CHOLECALCIFEROL
     Dosage: UNK

REACTIONS (4)
  - Somnolence [Unknown]
  - Off label use [Unknown]
  - Drug ineffective for unapproved indication [Unknown]
  - Asthenia [Unknown]

NARRATIVE: CASE EVENT DATE: 201809
